FAERS Safety Report 21407138 (Version 2)
Quarter: 2023Q1

REPORT INFORMATION
  Report Type: Report from Study
  Country: US (occurrence: US)
  Receive Date: 20221004
  Receipt Date: 20230104
  Transmission Date: 20230418
  Serious: No
  Sender: FDA-Public Use
  Company Number: US-ABBVIE-4133536

PATIENT
  Sex: Female

DRUGS (1)
  1. SKYRIZI [Suspect]
     Active Substance: RISANKIZUMAB-RZAA
     Indication: Product used for unknown indication
     Route: 058

REACTIONS (5)
  - Hyperhidrosis [Recovering/Resolving]
  - Blister rupture [Recovering/Resolving]
  - Hot flush [Recovering/Resolving]
  - Pyrexia [Unknown]
  - Hypersensitivity [Recovering/Resolving]
